FAERS Safety Report 11798198 (Version 1)
Quarter: 2015Q4

REPORT INFORMATION
  Report Type: Spontaneous
  Country: US (occurrence: US)
  Receive Date: 20151203
  Receipt Date: 20151203
  Transmission Date: 20160305
  Serious: No
  Sender: FDA-Public Use
  Company Number: US-REGENERON PHARMACEUTICALS, INC.-2015-10549

PATIENT

DRUGS (2)
  1. EYLEA [Suspect]
     Active Substance: AFLIBERCEPT
     Indication: NEOVASCULAR AGE-RELATED MACULAR DEGENERATION
     Dosage: 2.0 MG MILLIGRAM(S)/0.5 ML, Q 6 WEEKS
     Route: 031
     Dates: start: 20140512
  2. EYLEA [Suspect]
     Active Substance: AFLIBERCEPT
     Dosage: 2.0 MG MILLIGRAM(S)/0.5 ML, Q 6 WEEKS
     Route: 031
     Dates: start: 20150302, end: 20150302

REACTIONS (1)
  - Madarosis [Unknown]
